FAERS Safety Report 8278605-X (Version None)
Quarter: 2012Q2

REPORT INFORMATION
  Report Type: 
  Country: None (occurrence: None)
  Receive Date: 20120412
  Receipt Date: 20111130
  Transmission Date: 20120825
  Serious: Yes (Death, Life-Threatening, Hospitalization, Other)
  Sender: FDA-Public Use
  Company Number: ES-CELGENEUS-144-50794-11114102

PATIENT
  Sex: Female
  Weight: 58 kg

DRUGS (8)
  1. ENALAPRIL MALEATE [Concomitant]
     Dosage: 10 MILLIGRAM
     Route: 065
  2. VORICONAZOLE [Concomitant]
     Dosage: 400 MILLIGRAM
     Route: 065
     Dates: start: 20071123, end: 20080129
  3. VIDAZA [Suspect]
     Route: 065
     Dates: end: 20080426
  4. HYDROXYUREA [Concomitant]
     Dosage: 2229 MILLIGRAM
     Route: 065
     Dates: start: 20071118, end: 20080212
  5. VIDAZA [Suspect]
     Route: 065
     Dates: start: 20080212, end: 20080220
  6. RABEPRAZOLE SODIUM [Concomitant]
     Dosage: 20 MILLIGRAM
     Route: 065
     Dates: start: 20071130, end: 20080414
  7. FUROSEMIDE [Concomitant]
     Dosage: 40 MILLIGRAM
     Route: 065
     Dates: start: 20071110, end: 20080225
  8. LEXATIN [Concomitant]
     Dosage: 1 DOSAGE FORMS
     Route: 065

REACTIONS (2)
  - ACUTE MYELOID LEUKAEMIA [None]
  - BRONCHOPNEUMONIA [None]
